FAERS Safety Report 4468144-6 (Version None)
Quarter: 2004Q4

REPORT INFORMATION
  Report Type: 
  Country: None (occurrence: None)
  Receive Date: 20041004
  Receipt Date: 20041004
  Transmission Date: 20050328
  Serious: Yes (Other)
  Sender: FDA-Public Use
  Company Number: None

PATIENT
  Age: 41 Year
  Sex: Female
  Weight: 77.1115 kg

DRUGS (3)
  1. VIOXX [Suspect]
     Indication: JOINT INJURY
     Dosage: 25MG DAY ORAL
     Route: 048
     Dates: start: 20020801, end: 20031127
  2. VIOXX [Suspect]
     Indication: BACK INJURY
     Dosage: 50 MG DAY ORAL
     Route: 048
     Dates: start: 20031128, end: 20040414
  3. VIOXX [Suspect]
     Indication: NECK INJURY
     Dosage: 50 MG DAY ORAL
     Route: 048
     Dates: start: 20031128, end: 20040414

REACTIONS (2)
  - GENERALISED OEDEMA [None]
  - ROAD TRAFFIC ACCIDENT [None]
